FAERS Safety Report 9196576 (Version 1)
Quarter: 2013Q1

REPORT INFORMATION
  Report Type: Spontaneous
  Country: US (occurrence: None)
  Receive Date: 20120709
  Receipt Date: 20120709
  Transmission Date: 20140127
  Serious: Yes (Death)
  Sender: FDA-Public Use
  Company Number: PHHY2011US49935

PATIENT
  Age: 74 Year
  Sex: Female

DRUGS (4)
  1. GLEEVEC (IMATINIB) [Suspect]
     Indication: CHRONIC MYELOID LEUKAEMIA
  2. GLEEVEC (IMATINIB) [Suspect]
     Indication: LYMPHOCYTIC LEUKAEMIA
  3. TASIGNA [Suspect]
     Indication: CHRONIC MYELOID LEUKAEMIA
     Route: 048
  4. TASIGNA [Suspect]
     Indication: LYMPHOCYTIC LEUKAEMIA
     Route: 048

REACTIONS (3)
  - Chronic myeloid leukaemia [None]
  - Lymphocytic leukaemia [None]
  - Neoplasm malignant [None]
